FAERS Safety Report 5738790-8 (Version None)
Quarter: 2008Q2

REPORT INFORMATION
  Report Type: 
  Country: None (occurrence: None)
  Receive Date: 20080515
  Receipt Date: 20080303
  Transmission Date: 20081010
  Serious: No
  Sender: FDA-Public Use
  Company Number: A0712958A

PATIENT
  Age: 73 Year
  Sex: Female

DRUGS (10)
  1. VERAMYST [Suspect]
     Dosage: 2SPR PER DAY
     Route: 045
     Dates: start: 20080213, end: 20080227
  2. SINGULAIR [Concomitant]
  3. LISINOPRIL [Concomitant]
  4. ASPIRIN [Concomitant]
  5. FIORICET [Concomitant]
  6. TYLENOL [Concomitant]
  7. ZYRTEC [Concomitant]
  8. NEURONTIN [Concomitant]
  9. AMBIEN [Concomitant]
  10. TRAZODONE HCL [Concomitant]

REACTIONS (5)
  - BLISTER [None]
  - ERYTHEMA [None]
  - HEADACHE [None]
  - ILL-DEFINED DISORDER [None]
  - NASAL DISCOMFORT [None]
